FAERS Safety Report 10261274 (Version 2)
Quarter: 2014Q2

REPORT INFORMATION
  Report Type: Spontaneous
  Country: DE (occurrence: DE)
  Receive Date: 20140626
  Receipt Date: 20140626
  Transmission Date: 20141212
  Serious: Yes (Life-Threatening, Hospitalization)
  Sender: FDA-Public Use
  Company Number: DE-JNJFOC-20140502524

PATIENT
  Age: 60 Year
  Sex: Male
  Weight: 99.77 kg

DRUGS (4)
  1. XARELTO [Suspect]
     Indication: CEREBROVASCULAR ACCIDENT PROPHYLAXIS
     Route: 048
     Dates: start: 20130501, end: 20140321
  2. XARELTO [Suspect]
     Indication: ATRIAL FIBRILLATION
     Route: 048
     Dates: start: 20130501, end: 20140321
  3. NEBIVOLOL [Concomitant]
     Route: 065
  4. ATACAND [Concomitant]
     Route: 065

REACTIONS (2)
  - Upper gastrointestinal haemorrhage [Recovered/Resolved]
  - Gastritis erosive [Recovered/Resolved]
